FAERS Safety Report 21609519 (Version 1)
Quarter: 2022Q4

REPORT INFORMATION
  Report Type: Spontaneous
  Country: US (occurrence: None)
  Receive Date: 20221116
  Receipt Date: 20221116
  Transmission Date: 20230113
  Serious: Yes (Other)
  Sender: FDA-Public Use
  Company Number: None

PATIENT
  Age: 67 Year
  Sex: Male

DRUGS (21)
  1. TESTOPEL [Suspect]
     Active Substance: TESTOSTERONE
     Indication: Testicular failure
     Dosage: OTHER FREQUENCY : EVERY 90 DAYS;?
     Route: 058
     Dates: start: 20190809
  2. TESTOPEL [Suspect]
     Active Substance: TESTOSTERONE
     Dosage: OTHER QUANTITY : 12 PELLETS;?OTHER FREQUENCY : EVERY 90 DAYS;?
     Route: 058
  3. ALBUTEROL AER HFA [Concomitant]
  4. ALPRAZOLAM [Concomitant]
     Active Substance: ALPRAZOLAM
  5. ANASTROZOLE [Concomitant]
     Active Substance: ANASTROZOLE
  6. DICYCLOMINE [Concomitant]
     Active Substance: DICYCLOMINE HYDROCHLORIDE
  7. FARXIGA [Concomitant]
     Active Substance: DAPAGLIFLOZIN PROPANEDIOL
  8. GLIPIZIDE [Concomitant]
     Active Substance: GLIPIZIDE
  9. ACETAMINOPHEN\HYDROCODONE [Concomitant]
     Active Substance: ACETAMINOPHEN\HYDROCODONE
  10. HYDROXYZINE HYDROCHLORIDE [Concomitant]
     Active Substance: HYDROXYZINE HYDROCHLORIDE
  11. MELOXICAM [Concomitant]
     Active Substance: MELOXICAM
  12. METHOCARBAMOL [Concomitant]
     Active Substance: METHOCARBAMOL
  13. NADOLOL [Concomitant]
     Active Substance: NADOLOL
  14. OMEPRAZOLE [Concomitant]
     Active Substance: OMEPRAZOLE
  15. PROMETHAZINE [Concomitant]
     Active Substance: PROMETHAZINE HYDROCHLORIDE
  16. TACROLIMUS [Concomitant]
     Active Substance: TACROLIMUS
  17. TEMAZEPAM [Concomitant]
     Active Substance: TEMAZEPAM
  18. TERCONAZOLE [Concomitant]
     Active Substance: TERCONAZOLE
  19. TESTOSTERONE CYPIONATE [Concomitant]
     Active Substance: TESTOSTERONE CYPIONATE
  20. TRAZODONE [Concomitant]
     Active Substance: TRAZODONE HYDROCHLORIDE
  21. VALACYCLOVIR [Concomitant]

REACTIONS (1)
  - Hernia [None]

NARRATIVE: CASE EVENT DATE: 20221110
